FAERS Safety Report 4654039-1 (Version None)
Quarter: 2005Q2

REPORT INFORMATION
  Report Type: 
  Country: None (occurrence: None)
  Receive Date: 20050404
  Receipt Date: 20050120
  Transmission Date: 20051028
  Serious: No
  Sender: FDA-Public Use
  Company Number: USA050188143

PATIENT
  Age: 83 Year
  Sex: Female
  Weight: 65 kg

DRUGS (5)
  1. CYMBALTA [Suspect]
     Indication: DEPRESSION
     Dosage: 60 MG DAY
     Dates: start: 20050102
  2. REMERON (MIRTAZAPINE ORIFARM) [Concomitant]
  3. SYNTHROID [Concomitant]
  4. ATENOLOL [Concomitant]
  5. ANTIHYPERTENSIVE THERAPY, UNSPECIFIED [Concomitant]

REACTIONS (8)
  - ANXIETY [None]
  - CHILLS [None]
  - DRUG INEFFECTIVE [None]
  - FATIGUE [None]
  - NEGATIVISM [None]
  - SEDATION [None]
  - SLEEP DISORDER [None]
  - THINKING ABNORMAL [None]
